FAERS Safety Report 8411703-6 (Version None)
Quarter: 2012Q2

REPORT INFORMATION
  Report Type: 
  Country: None (occurrence: None)
  Receive Date: 20120531
  Receipt Date: 20120531
  Transmission Date: 20120825
  Serious: Yes (Hospitalization)
  Sender: FDA-Public Use
  Company Number: None

PATIENT
  Age: 38 Year
  Sex: Male
  Weight: 63.9572 kg

DRUGS (1)
  1. HYDRALAZINE HCL [Suspect]
     Indication: ANXIETY
     Dosage: 50 MG EVERY 8HRS BY MOUTH
     Route: 048
     Dates: start: 20120511

REACTIONS (13)
  - MYALGIA [None]
  - PYREXIA [None]
  - PAIN [None]
  - MOVEMENT DISORDER [None]
  - SENSATION OF HEAVINESS [None]
  - CHEST PAIN [None]
  - GAIT DISTURBANCE [None]
  - MUSCULOSKELETAL DISORDER [None]
  - PALPITATIONS [None]
  - FEELING COLD [None]
  - HYPOAESTHESIA [None]
  - ARTHRALGIA [None]
  - HEART RATE INCREASED [None]
